FAERS Safety Report 11194319 (Version 2)
Quarter: 2015Q2

REPORT INFORMATION
  Report Type: Report from Study
  Country: NL (occurrence: NL)
  Receive Date: 20150616
  Receipt Date: 20150630
  Transmission Date: 20150821
  Serious: Yes (Other)
  Sender: FDA-Public Use
  Company Number: NL-ABBVIE-15P-114-1409696-00

PATIENT
  Age: 66 Year
  Sex: Male
  Weight: 93 kg

DRUGS (4)
  1. LUCRIN DEPOT [Suspect]
     Active Substance: LEUPROLIDE ACETATE
     Indication: PROSTATE CANCER
     Route: 058
     Dates: start: 20130118
  2. BICALUTAMIDE. [Concomitant]
     Active Substance: BICALUTAMIDE
     Indication: PROSTATIC SPECIFIC ANTIGEN INCREASED
     Route: 048
  3. CALCIUM CARBONATE. [Concomitant]
     Active Substance: CALCIUM CARBONATE
     Indication: OSTEOPOROSIS PROPHYLAXIS
     Route: 048
  4. SOLIFENACINE [Concomitant]
     Indication: BLADDER DISORDER
     Route: 048

REACTIONS (1)
  - Metastases to bone [Not Recovered/Not Resolved]

NARRATIVE: CASE EVENT DATE: 201502
